FAERS Safety Report 11646677 (Version 3)
Quarter: 2020Q1

REPORT INFORMATION
  Report Type: Spontaneous
  Country: US (occurrence: US)
  Receive Date: 20151020
  Receipt Date: 20200318
  Transmission Date: 20200409
  Serious: Yes (Hospitalization, Other)
  Sender: FDA-Public Use
  Company Number: US-ROCHE-ITM201503IM011466

PATIENT
  Age: 72 Year
  Sex: Female
  Weight: 61.74 kg

DRUGS (4)
  1. PREDNISONE. [Concomitant]
     Active Substance: PREDNISONE
  2. ESBRIET [Suspect]
     Active Substance: PIRFENIDONE
     Indication: CHRONIC OBSTRUCTIVE PULMONARY DISEASE
  3. ESBRIET [Suspect]
     Active Substance: PIRFENIDONE
     Indication: IDIOPATHIC PULMONARY FIBROSIS
     Route: 048
     Dates: start: 20150211
  4. ESBRIET [Suspect]
     Active Substance: PIRFENIDONE
     Indication: PULMONARY FIBROSIS

REACTIONS (10)
  - Asthenia [Recovering/Resolving]
  - Fatigue [Unknown]
  - Hyperhidrosis [Recovering/Resolving]
  - Overdose [Unknown]
  - Off label use [Unknown]
  - Fatigue [Recovering/Resolving]
  - Pneumonia [Unknown]
  - Nasopharyngitis [Not Recovered/Not Resolved]
  - Chest pain [Unknown]
  - Bone pain [Unknown]

NARRATIVE: CASE EVENT DATE: 20150925
